FAERS Safety Report 25009722 (Version 2)
Quarter: 2025Q1

REPORT INFORMATION
  Report Type: Spontaneous
  Country: GB (occurrence: GB)
  Receive Date: 20250225
  Receipt Date: 20250307
  Transmission Date: 20250409
  Serious: Yes (Other)
  Sender: GALPHARM INTERNATIONAL
  Company Number: None

PATIENT
  Age: 19 Year
  Sex: Male
  Weight: 61 kg

DRUGS (6)
  1. ACETAMINOPHEN [Suspect]
     Active Substance: ACETAMINOPHEN
     Indication: Pain
     Dosage: 5 GRAM, ONCE A DAY
     Route: 065
     Dates: start: 20250120, end: 20250203
  2. CABOZANTINIB [Suspect]
     Active Substance: CABOZANTINIB
     Indication: Desmoplastic small round cell tumour
     Route: 065
     Dates: end: 20250128
  3. CABOZANTINIB [Suspect]
     Active Substance: CABOZANTINIB
     Indication: Off label use
  4. PREGABALIN [Concomitant]
     Active Substance: PREGABALIN
     Indication: Pain in extremity
     Route: 065
     Dates: start: 202411
  5. DOCUSATE [Concomitant]
     Active Substance: DOCUSATE
     Indication: Constipation
     Route: 065
  6. IBUPROFEN [Concomitant]
     Active Substance: IBUPROFEN
     Indication: Pain
     Route: 065
     Dates: start: 20250129

REACTIONS (3)
  - Pancreatitis acute [Not Recovered/Not Resolved]
  - Jaundice cholestatic [Unknown]
  - Malignant neoplasm progression [Unknown]

NARRATIVE: CASE EVENT DATE: 20250127
